FAERS Safety Report 4430533-3 (Version None)
Quarter: 2004Q3

REPORT INFORMATION
  Report Type: 
  Country: None (occurrence: None)
  Receive Date: 20040818
  Receipt Date: 20040803
  Transmission Date: 20050211
  Serious: Yes (Hospitalization)
  Sender: FDA-Public Use
  Company Number: FR_040604260

PATIENT
  Age: 21 Year
  Sex: Male

DRUGS (1)
  1. ZYPREXA [Suspect]
     Indication: ABNORMAL BEHAVIOUR
     Dosage: 7.5 MG DAY
     Dates: start: 20040529

REACTIONS (3)
  - LOSS OF CONSCIOUSNESS [None]
  - MALAISE [None]
  - VENTRICULAR EXTRASYSTOLES [None]
